FAERS Safety Report 8804109 (Version 2)
Quarter: 2012Q4

REPORT INFORMATION
  Report Type: 
  Country: AT (occurrence: AT)
  Receive Date: 20120924
  Receipt Date: 20121213
  Transmission Date: 20130627
  Serious: Yes (Hospitalization)
  Sender: FDA-Public Use
  Company Number: AT-JNJFOC-20120905495

PATIENT
  Age: 57 Year
  Sex: Male
  Weight: 85 kg

DRUGS (2)
  1. SIMPONI [Suspect]
     Indication: ARTHRITIS
     Route: 058
     Dates: start: 201205, end: 201207
  2. MENCORD PLUS [Concomitant]
     Dosage: 20mg/12.5mg 1 dose/day
     Route: 065

REACTIONS (2)
  - Lobar pneumonia [Recovered/Resolved]
  - Renal failure acute [Recovered/Resolved]
